FAERS Safety Report 16016748 (Version 1)
Quarter: 2019Q1

REPORT INFORMATION
  Report Type: Spontaneous
  Country: US (occurrence: US)
  Receive Date: 20190131
  Receipt Date: 20190131
  Transmission Date: 20190418
  Serious: Yes (Hospitalization)
  Sender: FDA-Public Use
  Company Number: None

PATIENT
  Age: 34 Year
  Sex: Male
  Weight: 80.1 kg

DRUGS (1)
  1. DOXORUBICIN HYDROCHLORIDE (123127) [Suspect]
     Active Substance: DOXORUBICIN HYDROCHLORIDE
     Dates: end: 20190119

REACTIONS (15)
  - Neutropenic colitis [None]
  - Thrombosis [None]
  - Acute kidney injury [None]
  - Gastrointestinal ischaemia [None]
  - Lactic acidosis [None]
  - Pulmonary embolism [None]
  - Renal replacement therapy [None]
  - Septic shock [None]
  - Peritoneal fluid analysis abnormal [None]
  - Ischaemic hepatitis [None]
  - Colitis [None]
  - Hypovolaemia [None]
  - Purulence [None]
  - Hyperkalaemia [None]
  - Bacterial infection [None]

NARRATIVE: CASE EVENT DATE: 20190126
